FAERS Safety Report 9976045 (Version 1)
Quarter: 2014Q1

REPORT INFORMATION
  Report Type: Spontaneous
  Country: US (occurrence: US)
  Receive Date: 20140306
  Receipt Date: 20140306
  Transmission Date: 20141002
  Serious: Yes (Hospitalization)
  Sender: FDA-Public Use
  Company Number: PHHY2014US024252

PATIENT
  Age: 70 Year
  Sex: Male

DRUGS (1)
  1. METFORMIN [Suspect]
     Indication: TYPE 2 DIABETES MELLITUS
     Dosage: 500 MG, BID

REACTIONS (8)
  - Metabolic acidosis [Recovered/Resolved]
  - Congestive cardiomyopathy [Unknown]
  - Renal failure chronic [Unknown]
  - Chest pain [Unknown]
  - Dyspnoea [Unknown]
  - Renal failure acute [Unknown]
  - Ejection fraction decreased [Unknown]
  - Kussmaul respiration [Unknown]
